FAERS Safety Report 6259816-1 (Version None)
Quarter: 2009Q3

REPORT INFORMATION
  Report Type: 
  Country: None (occurrence: None)
  Receive Date: 20090706
  Receipt Date: 20090706
  Transmission Date: 20100115
  Serious: No
  Sender: FDA-Public Use
  Company Number: None

PATIENT
  Age: 57 Year
  Sex: Male
  Weight: 124.7392 kg

DRUGS (1)
  1. ZICAM GEL SWAB ZICAM [Suspect]
     Indication: NASOPHARYNGITIS
     Dosage: 1 SWAB EVERY 4 HOURS
     Dates: start: 20080331, end: 20080404

REACTIONS (1)
  - ANOSMIA [None]
